FAERS Safety Report 8845535 (Version 1)
Quarter: 2012Q4

REPORT INFORMATION
  Report Type: 
  Country: IL (occurrence: IL)
  Receive Date: 20121017
  Receipt Date: 20121017
  Transmission Date: 20130627
  Serious: Yes (Death)
  Sender: FDA-Public Use
  Company Number: PHHY2012IL092401

PATIENT
  Age: 76 Year
  Sex: Male

DRUGS (2)
  1. SANDOSTATIN LAR [Suspect]
     Indication: CARCINOID TUMOUR
     Dosage: 20 mg, every 28 days
     Dates: start: 20120823
  2. SANDOSTATIN LAR [Suspect]
     Dosage: 20 mg, every 28 days
     Dates: start: 20120920

REACTIONS (1)
  - Death [Fatal]
